FAERS Safety Report 6328621-X (Version None)
Quarter: 2009Q3

REPORT INFORMATION
  Report Type: 
  Country: None (occurrence: None)
  Receive Date: 20090824
  Receipt Date: 20090824
  Transmission Date: 20100115
  Serious: Yes (Hospitalization)
  Sender: FDA-Public Use
  Company Number: None

PATIENT
  Sex: Male
  Weight: 96.5 kg

DRUGS (3)
  1. CYCLOPHOSPHAMIDE [Suspect]
     Dosage: 1248 MG
  2. PENTOSTATIN [Suspect]
     Dosage: 8 MG
  3. RITUXIMAB (MOAB C2B8 ANTI CD20, CHIMERIC) [Suspect]
     Dosage: 1660 MG

REACTIONS (3)
  - CHEST PAIN [None]
  - FEBRILE NEUTROPENIA [None]
  - NON-CARDIOGENIC PULMONARY OEDEMA [None]
